FAERS Safety Report 12779920 (Version 1)
Quarter: 2016Q3

REPORT INFORMATION
  Report Type: Spontaneous
  Country: US (occurrence: US)
  Receive Date: 20160923
  Receipt Date: 20160923
  Transmission Date: 20161109
  Serious: Yes (Hospitalization)
  Sender: FDA-Public Use
  Company Number: None

PATIENT
  Age: 64 Year
  Sex: Male
  Weight: 96.62 kg

DRUGS (1)
  1. BEVACIZUMAB [Suspect]
     Active Substance: BEVACIZUMAB
     Indication: GLIOBLASTOMA
     Dosage: 10MG/KG DAYS 1 + 15 IV
     Route: 042
     Dates: start: 20160825

REACTIONS (2)
  - Transient ischaemic attack [None]
  - Seizure [None]

NARRATIVE: CASE EVENT DATE: 20160921
